FAERS Safety Report 5694136-5 (Version None)
Quarter: 2008Q2

REPORT INFORMATION
  Report Type: 
  Country: None (occurrence: None)
  Receive Date: 20080402
  Receipt Date: 20080317
  Transmission Date: 20081010
  Serious: Yes (Hospitalization, Other)
  Sender: FDA-Public Use
  Company Number: 2008MB000022

PATIENT
  Age: 33 Year
  Sex: Female

DRUGS (4)
  1. KEFLEX [Suspect]
     Indication: MASTITIS
  2. OXYCODONE HCL [Suspect]
     Indication: MASTITIS
  3. IRON [Concomitant]
  4. MULTIVITAMINS, COMBINATIONS [Concomitant]

REACTIONS (11)
  - ANXIETY [None]
  - CAESAREAN SECTION [None]
  - DIFFUSE LARGE B-CELL LYMPHOMA [None]
  - DRUG EXPOSURE DURING PREGNANCY [None]
  - DYSPNOEA EXERTIONAL [None]
  - ECCHYMOSIS [None]
  - JUGULAR VEIN DISTENSION [None]
  - NO THERAPEUTIC RESPONSE [None]
  - ORTHOPNOEA [None]
  - PREMATURE BABY [None]
  - SINUS TACHYCARDIA [None]
